FAERS Safety Report 14246529 (Version 1)
Quarter: 2017Q4

REPORT INFORMATION
  Report Type: Spontaneous
  Country: US (occurrence: US)
  Receive Date: 20171201
  Receipt Date: 20171201
  Transmission Date: 20180321
  Serious: No
  Sender: FDA-Public Use
  Company Number: None

PATIENT
  Age: 67 Year
  Sex: Male
  Weight: 78.75 kg

DRUGS (6)
  1. MUCINEX D [Suspect]
     Active Substance: GUAIFENESIN\PSEUDOEPHEDRINE HYDROCHLORIDE
     Indication: SINUS CONGESTION
     Dosage: ?          QUANTITY:24 TABLET(S);?
     Route: 048
     Dates: start: 20171128, end: 20171130
  2. APPLE CIDER VINGEGAR [Concomitant]
  3. FLONASE [Concomitant]
     Active Substance: FLUTICASONE PROPIONATE
  4. D3 WITH K2 [Concomitant]
  5. CENTRUM SILVER [Concomitant]
     Active Substance: MINERALS\VITAMINS
  6. OREGANO OIL [Concomitant]

REACTIONS (6)
  - Dysuria [None]
  - Micturition urgency [None]
  - Testicular swelling [None]
  - Product formulation issue [None]
  - Testicular pain [None]
  - Therapy cessation [None]

NARRATIVE: CASE EVENT DATE: 20171128
